FAERS Safety Report 24244148 (Version 1)
Quarter: 2024Q3

REPORT INFORMATION
  Report Type: Spontaneous
  Country: US (occurrence: None)
  Receive Date: 20240823
  Receipt Date: 20240823
  Transmission Date: 20241017
  Serious: Yes (Hospitalization)
  Sender: Public
  Company Number: None

PATIENT
  Sex: Male

DRUGS (1)
  1. GLEOSTINE [Suspect]
     Active Substance: LOMUSTINE
     Indication: Brain neoplasm malignant
     Dosage: OTHER FREQUENCY : 1DAYEVERY6WEEKS;?
     Route: 048
     Dates: start: 202407

REACTIONS (3)
  - Dehydration [None]
  - COVID-19 [None]
  - Urinary tract infection [None]
